FAERS Safety Report 6552233-6 (Version None)
Quarter: 2010Q1

REPORT INFORMATION
  Report Type: 
  Country: None (occurrence: None)
  Receive Date: 20100126
  Receipt Date: 20100115
  Transmission Date: 20100710
  Serious: Yes (Hospitalization)
  Sender: FDA-Public Use
  Company Number: US-MYLANLABS-2010S1000692

PATIENT
  Age: 48 Year
  Sex: Female

DRUGS (9)
  1. LEVETIRACETAM [Suspect]
     Indication: CONVULSION
     Route: 048
     Dates: start: 20090203, end: 20090301
  2. LEVETIRACETAM [Suspect]
     Route: 048
     Dates: start: 20090203, end: 20090301
  3. PRIMIDONE [Concomitant]
     Dates: start: 20100115
  4. LEVOTHYROXINE SODIUM [Concomitant]
  5. PREMARIN [Concomitant]
  6. SERTRALINE HCL [Concomitant]
  7. CALCIUM [Concomitant]
  8. MULTI-VITAMINS [Concomitant]
  9. ALEVE (CAPLET) [Concomitant]

REACTIONS (4)
  - CARDIAC DISORDER [None]
  - DIZZINESS [None]
  - FATIGUE [None]
  - NAUSEA [None]
